FAERS Safety Report 5301555-5 (Version None)
Quarter: 2007Q2

REPORT INFORMATION
  Report Type: 
  Country: None (occurrence: None)
  Receive Date: 20070412
  Receipt Date: 20070401
  Transmission Date: 20071010
  Serious: Yes (Hospitalization)
  Sender: FDA-Public Use
  Company Number: GXKR2007GR03138

PATIENT
  Age: 38 Year
  Sex: Male

DRUGS (1)
  1. OSPEN (NGX) (PHENOXYMETHYLPENICILLIN (= PENICILLIN V)) TABLET, 1500000 [Suspect]
     Indication: TOOTH ABSCESS
     Dosage: 1500000 IU, QID, ORAL
     Route: 048
     Dates: start: 20070315, end: 20070322

REACTIONS (2)
  - EPISTAXIS [None]
  - IDIOPATHIC THROMBOCYTOPENIC PURPURA [None]
